FAERS Safety Report 6252998-7 (Version None)
Quarter: 2009Q3

REPORT INFORMATION
  Report Type: 
  Country: None (occurrence: None)
  Receive Date: 20090701
  Receipt Date: 20090625
  Transmission Date: 20100115
  Serious: Yes (Other)
  Sender: FDA-Public Use
  Company Number: AU-AMGEN-QUU351740

PATIENT
  Sex: Male
  Weight: 58 kg

DRUGS (1)
  1. ARANESP [Suspect]
     Indication: DIALYSIS
     Route: 058
     Dates: start: 20040513, end: 20090615

REACTIONS (1)
  - APLASIA PURE RED CELL [None]
